FAERS Safety Report 21187300 (Version 4)
Quarter: 2022Q3

REPORT INFORMATION
  Report Type: Report from Study
  Country: CH (occurrence: CH)
  Receive Date: 20220808
  Receipt Date: 20220831
  Transmission Date: 20221027
  Serious: Yes (Other)
  Sender: FDA-Public Use
  Company Number: CH-TAKEDA-2022TUS052314

PATIENT
  Age: 56 Year
  Sex: Female

DRUGS (14)
  1. TEDUGLUTIDE [Suspect]
     Active Substance: TEDUGLUTIDE
     Indication: Short-bowel syndrome
     Dosage: 1.4 MILLIGRAM, QD
     Route: 058
     Dates: start: 20220728
  2. TEDUGLUTIDE [Suspect]
     Active Substance: TEDUGLUTIDE
     Indication: Short-bowel syndrome
     Dosage: 1.4 MILLIGRAM, QD
     Route: 058
     Dates: start: 20220728
  3. TEDUGLUTIDE [Suspect]
     Active Substance: TEDUGLUTIDE
     Indication: Short-bowel syndrome
     Dosage: 1.4 MILLIGRAM, QD
     Route: 058
     Dates: start: 20220728
  4. TEDUGLUTIDE [Suspect]
     Active Substance: TEDUGLUTIDE
     Indication: Short-bowel syndrome
     Dosage: 1.4 MILLIGRAM, QD
     Route: 058
     Dates: start: 20220728
  5. TEDUGLUTIDE [Suspect]
     Active Substance: TEDUGLUTIDE
     Dosage: UNK, QD
     Route: 058
     Dates: start: 20220728
  6. TEDUGLUTIDE [Suspect]
     Active Substance: TEDUGLUTIDE
     Dosage: UNK, QD
     Route: 058
     Dates: start: 20220728
  7. TEDUGLUTIDE [Suspect]
     Active Substance: TEDUGLUTIDE
     Dosage: UNK, QD
     Route: 058
     Dates: start: 20220728
  8. TEDUGLUTIDE [Suspect]
     Active Substance: TEDUGLUTIDE
     Dosage: UNK, QD
     Route: 058
     Dates: start: 20220728
  9. TEDUGLUTIDE [Suspect]
     Active Substance: TEDUGLUTIDE
     Dosage: 0.07 MILLILITER, QD
     Route: 058
     Dates: start: 20220817, end: 20220821
  10. TEDUGLUTIDE [Suspect]
     Active Substance: TEDUGLUTIDE
     Dosage: 0.07 MILLILITER, QD
     Route: 058
     Dates: start: 20220817, end: 20220821
  11. TEDUGLUTIDE [Suspect]
     Active Substance: TEDUGLUTIDE
     Dosage: 0.07 MILLILITER, QD
     Route: 058
     Dates: start: 20220817, end: 20220821
  12. TEDUGLUTIDE [Suspect]
     Active Substance: TEDUGLUTIDE
     Dosage: 0.07 MILLILITER, QD
     Route: 058
     Dates: start: 20220817, end: 20220821
  13. SODIUM BICARBONATE\SODIUM CHLORIDE [Concomitant]
     Active Substance: SODIUM BICARBONATE\SODIUM CHLORIDE
     Dosage: 980 MILLILITER, QD
     Route: 065
  14. SODIUM BICARBONATE\SODIUM CHLORIDE [Concomitant]
     Active Substance: SODIUM BICARBONATE\SODIUM CHLORIDE
     Dosage: 980 MILLILITER, 2/WEEK
     Route: 065

REACTIONS (8)
  - Renal failure [Unknown]
  - Chills [Recovered/Resolved]
  - Weight decreased [Recovered/Resolved]
  - Fatigue [Recovered/Resolved]
  - Nausea [Recovered/Resolved]
  - Vomiting [Recovered/Resolved]
  - Constipation [Unknown]
  - Drug intolerance [Unknown]

NARRATIVE: CASE EVENT DATE: 20220728
